FAERS Safety Report 17100751 (Version 2)
Quarter: 2020Q3

REPORT INFORMATION
  Report Type: Report from Study
  Country: US (occurrence: US)
  Receive Date: 20191202
  Receipt Date: 20200914
  Transmission Date: 20201102
  Serious: No
  Sender: FDA-Public Use
  Company Number: US-SA-2019SA326603

PATIENT

DRUGS (1)
  1. DUPILUMAB [Suspect]
     Active Substance: DUPILUMAB
     Indication: NASAL POLYPS
     Dosage: 300 MG, QOW
     Route: 058
     Dates: start: 20190916, end: 20200516

REACTIONS (3)
  - Product dose omission issue [Unknown]
  - Nasal operation [Unknown]
  - Off label use [Unknown]

NARRATIVE: CASE EVENT DATE: 202005
